FAERS Safety Report 4969455-8 (Version None)
Quarter: 2006Q2

REPORT INFORMATION
  Report Type: 
  Country: None (occurrence: None)
  Receive Date: 20060406
  Receipt Date: 20060330
  Transmission Date: 20061013
  Serious: Yes (Hospitalization)
  Sender: FDA-Public Use
  Company Number: WAES 0603USA04591

PATIENT
  Age: 55 Year
  Sex: Female
  Weight: 122.9248 kg

DRUGS (3)
  1. COZAAR [Suspect]
     Indication: CARDIAC FAILURE CONGESTIVE
     Dosage: 25 MG/DAILY/PO
     Route: 048
     Dates: start: 20030101, end: 20060204
  2. COREG [Suspect]
     Indication: CARDIAC FAILURE
     Dosage: PO
     Route: 048
     Dates: start: 20051201, end: 20060121
  3. CARVEDILOL [Concomitant]

REACTIONS (7)
  - ABDOMINAL DISTENSION [None]
  - ASCITES [None]
  - DYSPNOEA [None]
  - DYSPNOEA EXERTIONAL [None]
  - OLIGURIA [None]
  - RENAL FAILURE ACUTE [None]
  - SLEEP APNOEA SYNDROME [None]
